FAERS Safety Report 19877164 (Version 1)
Quarter: 2021Q3

REPORT INFORMATION
  Report Type: Spontaneous
  Country: US (occurrence: US)
  Receive Date: 20210923
  Receipt Date: 20210923
  Transmission Date: 20211014
  Serious: Yes (Other)
  Sender: FDA-Public Use
  Company Number: US-PURDUE-USA-2020-0284675

PATIENT
  Sex: Female

DRUGS (9)
  1. HYDROMORPHONE HCL ORAL SOLUTION [Suspect]
     Active Substance: HYDROMORPHONE HYDROCHLORIDE
     Indication: PAIN
     Dosage: UNKNOWN
     Route: 048
  2. PALLADONE [Suspect]
     Active Substance: HYDROMORPHONE HYDROCHLORIDE
     Indication: PAIN
     Dosage: UNKNOWN
     Route: 048
  3. MS IR [Suspect]
     Active Substance: MORPHINE SULFATE
     Indication: PAIN
     Dosage: UNKNOWN
     Route: 048
  4. TRAMADOL CR TABLETS (RHODES 21?745) [Suspect]
     Active Substance: TRAMADOL
     Indication: PAIN
     Dosage: UNKNOWN
     Route: 048
  5. OXYFAST [Suspect]
     Active Substance: OXYCODONE
     Indication: PAIN
     Dosage: UNKNOWN
     Route: 048
  6. OXYCODONE HCL TABLETS (RHODES 91?490) [Suspect]
     Active Substance: OXYCODONE HYDROCHLORIDE
     Indication: PAIN
     Dosage: UNKNOWN
     Route: 048
  7. DHC PLUS [Suspect]
     Active Substance: ACETAMINOPHEN\CAFFEINE\DIHYDROCODEINE BITARTRATE
     Indication: PAIN
     Dosage: UNKNOWN
     Route: 048
  8. HYSINGLA ER [Suspect]
     Active Substance: HYDROCODONE BITARTRATE
     Indication: PAIN
     Dosage: UNKNOWN
     Route: 048
  9. HYDROCODONE BITARTRATE AND ACETAMINOPHEN [Suspect]
     Active Substance: ACETAMINOPHEN\HYDROCODONE BITARTRATE
     Indication: PAIN
     Dosage: UNKNOWN
     Route: 048

REACTIONS (4)
  - Learning disability [Unknown]
  - Drug dependence [Unknown]
  - Mental impairment [Unknown]
  - Developmental delay [Unknown]
